FAERS Safety Report 19351636 (Version 6)
Quarter: 2021Q3

REPORT INFORMATION
  Report Type: Report from Study
  Country: JP (occurrence: JP)
  Receive Date: 20210531
  Receipt Date: 20210913
  Transmission Date: 20211014
  Serious: Yes (Hospitalization, Other)
  Sender: FDA-Public Use
  Company Number: JP-JNJFOC-20210558260

PATIENT
  Age: 82 Year
  Sex: Male
  Weight: 57 kg

DRUGS (26)
  1. NIPPAS CALCIUM [Suspect]
     Active Substance: AMINOSALICYLATE CALCIUM
     Indication: PULMONARY TUBERCULOSIS
     Route: 048
     Dates: start: 20200213, end: 20200221
  2. MECOBALAMIN [Concomitant]
     Active Substance: METHYLCOBALAMIN
     Indication: PROPHYLAXIS
     Route: 048
     Dates: end: 202108
  3. PYRIDOXAL [Concomitant]
     Active Substance: PYRIDOXAL
     Indication: PROPHYLAXIS
     Route: 048
     Dates: start: 20200229, end: 20200408
  4. LAMPREN [Suspect]
     Active Substance: CLOFAZIMINE
     Indication: PULMONARY TUBERCULOSIS
     Route: 048
     Dates: start: 20200203, end: 20200325
  5. ZYVOX [Suspect]
     Active Substance: LINEZOLID
     Indication: PULMONARY TUBERCULOSIS
     Route: 048
     Dates: start: 20200203, end: 20200329
  6. NIPPAS CALCIUM [Suspect]
     Active Substance: AMINOSALICYLATE CALCIUM
     Indication: PULMONARY TUBERCULOSIS
     Route: 048
     Dates: start: 20200203, end: 20200212
  7. DELAMANID [Suspect]
     Active Substance: DELAMANID
     Indication: PULMONARY TUBERCULOSIS
     Route: 048
     Dates: start: 20200408, end: 202108
  8. ISCOTIN [Concomitant]
     Active Substance: ISONIAZID
     Indication: PULMONARY TUBERCULOSIS
     Route: 048
     Dates: start: 20200415, end: 202108
  9. BEDAQUILINE [Suspect]
     Active Substance: BEDAQUILINE
     Route: 048
     Dates: start: 20200408, end: 20210802
  10. PYRIDOXAL [Concomitant]
     Active Substance: PYRIDOXAL
     Indication: PROPHYLAXIS
     Route: 048
     Dates: start: 20200409, end: 202108
  11. MAGNESIUM SULFATE HYDRATE/GLUCOSE [Concomitant]
     Indication: HYPOMAGNESAEMIA
     Route: 065
     Dates: start: 20200623, end: 20200628
  12. TUBERACTIN [Concomitant]
     Active Substance: ENVIOMYCIN SULFATE
     Indication: PULMONARY TUBERCULOSIS
     Route: 065
     Dates: start: 20200203, end: 20200329
  13. NICORANDIL [Concomitant]
     Active Substance: NICORANDIL
     Indication: ANGINA PECTORIS
     Route: 048
     Dates: end: 202108
  14. DELAMANID [Suspect]
     Active Substance: DELAMANID
     Indication: PULMONARY TUBERCULOSIS
     Route: 048
     Dates: start: 20200203, end: 20200329
  15. SODIUM RABEPRAZOLE [Concomitant]
     Active Substance: RABEPRAZOLE SODIUM
     Indication: PROPHYLAXIS
     Route: 048
     Dates: end: 202108
  16. ZYVOX [Suspect]
     Active Substance: LINEZOLID
     Indication: PULMONARY TUBERCULOSIS
     Route: 048
     Dates: start: 20200422, end: 20210125
  17. TUBERACTIN [Concomitant]
     Active Substance: ENVIOMYCIN SULFATE
     Indication: PULMONARY TUBERCULOSIS
     Route: 065
     Dates: start: 20200408, end: 20200809
  18. BAYASPIRIN [Concomitant]
     Active Substance: ASPIRIN
     Indication: ANGINA PECTORIS
     Route: 048
     Dates: end: 202108
  19. ROSUVASTATIN. [Concomitant]
     Active Substance: ROSUVASTATIN
     Indication: DYSLIPIDAEMIA
     Route: 048
     Dates: end: 202108
  20. TEPRENONE [Concomitant]
     Active Substance: TEPRENONE
     Indication: PROPHYLAXIS
     Route: 048
     Dates: end: 202108
  21. MAGMITT [Concomitant]
     Active Substance: MAGNESIUM OXIDE
     Indication: CONSTIPATION
     Route: 048
     Dates: start: 20200206, end: 20200213
  22. BEDAQUILINE [Suspect]
     Active Substance: BEDAQUILINE
     Indication: PULMONARY TUBERCULOSIS
     Route: 048
     Dates: start: 20200203, end: 20200217
  23. BEDAQUILINE [Suspect]
     Active Substance: BEDAQUILINE
     Route: 048
     Dates: start: 20200219, end: 20200329
  24. LAMPREN [Suspect]
     Active Substance: CLOFAZIMINE
     Indication: PULMONARY TUBERCULOSIS
     Route: 048
     Dates: start: 20210201
  25. LOSARTAN POTASSIUM. [Suspect]
     Active Substance: LOSARTAN POTASSIUM
     Indication: HYPERTENSION
     Route: 048
     Dates: end: 20200512
  26. ISONIAZID. [Concomitant]
     Active Substance: ISONIAZID
     Indication: PULMONARY TUBERCULOSIS
     Dosage: DOSE UNKNOWN
     Route: 048
     Dates: start: 20191017, end: 20200115

REACTIONS (7)
  - Decreased appetite [Recovering/Resolving]
  - Visual acuity reduced [Not Recovered/Not Resolved]
  - Hypomagnesaemia [Recovering/Resolving]
  - Hypotension [Recovered/Resolved]
  - Anaemia [Recovering/Resolving]
  - Electrocardiogram QT prolonged [Recovered/Resolved]
  - Constipation [Recovered/Resolved]

NARRATIVE: CASE EVENT DATE: 20200206
